FAERS Safety Report 8775224 (Version 4)
Quarter: 2012Q4

REPORT INFORMATION
  Report Type: 
  Country: FI (occurrence: FI)
  Receive Date: 20120910
  Receipt Date: 20121226
  Transmission Date: 20130627
  Serious: Yes (Death, Hospitalization, Other)
  Sender: FDA-Public Use
  Company Number: FI-AMGEN-FINSP2012056060

PATIENT
  Age: 66 Year
  Sex: Male

DRUGS (6)
  1. XGEVA [Suspect]
     Indication: METASTASES TO BONE
     Dosage: 120 mg, UNK
     Route: 058
     Dates: start: 20120611, end: 20120807
  2. LINATIL [Concomitant]
     Indication: BLOOD PRESSURE ABNORMAL
     Dosage: 20 mg, UNK
     Route: 048
     Dates: start: 20100611
  3. IMOVANE [Concomitant]
     Indication: INSOMNIA
     Dosage: 7.5 mg, UNK
     Route: 048
     Dates: start: 20100615
  4. SOMAC [Concomitant]
     Indication: DYSPEPSIA
     Dosage: 40 mg, UNK
     Route: 048
     Dates: start: 20120717
  5. KALCIPOS-D [Concomitant]
     Indication: HYPOCALCAEMIA
     Dosage: UNK
     Route: 048
     Dates: start: 20120611
  6. OXANEST [Concomitant]
     Dosage: 10 mg, prn
     Dates: start: 20120617

REACTIONS (8)
  - Malignant neoplasm progression [Fatal]
  - Pain [Unknown]
  - Nausea [Unknown]
  - Hypocalcaemia [Not Recovered/Not Resolved]
  - Diarrhoea [Unknown]
  - Malaise [Unknown]
  - Fatigue [Unknown]
  - Metastases to bone [Unknown]
